FAERS Safety Report 4946557-3 (Version None)
Quarter: 2006Q1

REPORT INFORMATION
  Report Type: 
  Country: None (occurrence: None)
  Receive Date: 20060317
  Receipt Date: 20060315
  Transmission Date: 20060701
  Serious: Yes (Hospitalization)
  Sender: FDA-Public Use
  Company Number: US-GLAXOSMITHKLINE-A0597689A

PATIENT
  Sex: Female

DRUGS (2)
  1. LEXIVA [Suspect]
     Indication: HIV INFECTION
     Route: 048
  2. ANTIRETROVIRAL MEDICATIONS [Concomitant]

REACTIONS (2)
  - CARDIAC DISORDER [None]
  - DYSPEPSIA [None]
